FAERS Safety Report 6893050-7 (Version None)
Quarter: 2010Q3

REPORT INFORMATION
  Report Type: 
  Country: None (occurrence: None)
  Receive Date: 20100731
  Receipt Date: 20090315
  Transmission Date: 20110219
  Serious: No
  Sender: FDA-Public Use
  Company Number: US-PFIZER INC-2008154142

PATIENT
  Sex: Female

DRUGS (2)
  1. NEURONTIN [Suspect]
     Dosage: UNK
     Dates: end: 20080101
  2. LYRICA [Suspect]
     Indication: BIPOLAR DISORDER
     Dosage: 50 MG, 1X/DAY
     Dates: start: 20080101

REACTIONS (2)
  - DRUG SCREEN POSITIVE [None]
  - HYPERTENSION [None]
